FAERS Safety Report 5116431-0 (Version None)
Quarter: 2006Q3

REPORT INFORMATION
  Report Type: 
  Country: None (occurrence: None)
  Receive Date: 20060928
  Receipt Date: 20060919
  Transmission Date: 20061208
  Serious: Yes (Hospitalization, Other)
  Sender: FDA-Public Use
  Company Number: SE-JNJFOC-20060904664

PATIENT
  Age: 52 Year
  Sex: Female

DRUGS (2)
  1. REMICADE [Suspect]
     Route: 042
  2. REMICADE [Suspect]
     Indication: PSORIASIS
     Route: 042

REACTIONS (5)
  - ARTHRALGIA [None]
  - ARTHRITIS [None]
  - CARPAL TUNNEL SYNDROME [None]
  - ENTHESOPATHY [None]
  - JOINT SWELLING [None]
